FAERS Safety Report 6409810-2 (Version None)
Quarter: 2009Q4

REPORT INFORMATION
  Report Type: 
  Country: None (occurrence: None)
  Receive Date: 20091022
  Receipt Date: 20091013
  Transmission Date: 20100525
  Serious: Yes (Other)
  Sender: FDA-Public Use
  Company Number: AT-ABBOTT-09P-009-0602423-00

PATIENT
  Sex: Female

DRUGS (5)
  1. HUMIRA [Suspect]
     Indication: POLYARTHRITIS
     Route: 058
     Dates: start: 20090706, end: 20090720
  2. ARAVA [Concomitant]
     Indication: POLYARTHRITIS
     Dates: start: 20090401
  3. RHEUTROP [Concomitant]
     Indication: POLYARTHRITIS
     Dates: start: 20090201
  4. LANSOPRAZOLE [Concomitant]
     Indication: POLYARTHRITIS
     Dates: start: 20070101
  5. APREDNISLON [Concomitant]
     Indication: POLYARTHRITIS
     Dates: start: 20090201

REACTIONS (2)
  - COLITIS [None]
  - DIARRHOEA [None]
